FAERS Safety Report 4451001-9 (Version None)
Quarter: 2004Q3

REPORT INFORMATION
  Report Type: 
  Country: None (occurrence: None)
  Receive Date: 20040916
  Receipt Date: 20040607
  Transmission Date: 20050211
  Serious: No
  Sender: FDA-Public Use
  Company Number: US-BRISTOL-MYERS SQUIBB COMPANY-12607321

PATIENT
  Age: 47 Year
  Sex: Male

DRUGS (1)
  1. STADOL [Suspect]

REACTIONS (2)
  - DYSGEUSIA [None]
  - RHINITIS [None]
